FAERS Safety Report 4544681-0 (Version None)
Quarter: 2005Q1

REPORT INFORMATION
  Report Type: 
  Country: None (occurrence: None)
  Receive Date: 20050103
  Receipt Date: 20050103
  Transmission Date: 20050727
  Serious: Yes (Death)
  Sender: FDA-Public Use
  Company Number: None

PATIENT
  Sex: Female
  Weight: 72.5755 kg

DRUGS (1)
  1. PROZAC [Suspect]
     Dosage: 20 MG ONCE DAILY ORAL
     Route: 048
     Dates: start: 20040619, end: 20041231

REACTIONS (2)
  - COMPLETED SUICIDE [None]
  - FEELING ABNORMAL [None]
